FAERS Safety Report 19353349 (Version 1)
Quarter: 2021Q2

REPORT INFORMATION
  Report Type: Spontaneous
  Country: US (occurrence: US)
  Receive Date: 20210531
  Receipt Date: 20210531
  Transmission Date: 20210717
  Serious: Yes (Disabling, Other)
  Sender: FDA-Public Use
  Company Number: US-PURDUE-USA-2010-0054947

PATIENT
  Sex: Male

DRUGS (2)
  1. MS CONTIN [Suspect]
     Active Substance: MORPHINE SULFATE
     Indication: PAIN
     Dosage: UNK
     Route: 048
  2. OXYCONTIN [Suspect]
     Active Substance: OXYCODONE HYDROCHLORIDE
     Indication: PAIN
     Dosage: 60 MG, TID
     Route: 048
     Dates: start: 20100924

REACTIONS (9)
  - Drug dependence [Unknown]
  - Abdominal pain upper [Unknown]
  - Drug ineffective [Unknown]
  - Irritability [Unknown]
  - Flushing [Unknown]
  - Nausea [Unknown]
  - Restlessness [Unknown]
  - Abdominal distension [Unknown]
  - Drug withdrawal syndrome [Unknown]
